FAERS Safety Report 8778639 (Version 2)
Quarter: 2012Q4

REPORT INFORMATION
  Report Type: 
  Country: US (occurrence: US)
  Receive Date: 20120912
  Receipt Date: 20121008
  Transmission Date: 20130627
  Serious: Yes (Other)
  Sender: FDA-Public Use
  Company Number: PHHY2012US077971

PATIENT
  Age: 64 Year
  Sex: Male

DRUGS (6)
  1. ASCRIPTIN BUFFERED MAX STRENGTH CAPLETS [Suspect]
     Indication: ANALGESIC THERAPY
     Route: 048
  2. ASCRIPTIN BUFFERED REG STRENGTH TABLETS [Suspect]
     Route: 048
  3. EXCEDRIN MIGRAINE [Suspect]
     Dosage: 2 DF/day (upto 8DF/day)
     Route: 048
     Dates: end: 201204
  4. MYLANTA [Concomitant]
     Dates: end: 201204
  5. VICADIN [Concomitant]
  6. BAYER ASPIRIN [Concomitant]
     Dates: end: 200010

REACTIONS (12)
  - Migraine [Unknown]
  - Blood pressure increased [Unknown]
  - Chills [Unknown]
  - Pain [Unknown]
  - Asthenia [Unknown]
  - Fatigue [Unknown]
  - Nausea [Unknown]
  - Confusional state [Unknown]
  - Incorrect drug administration duration [Unknown]
  - Product quality issue [None]
  - Influenza [None]
  - Angina pectoris [None]
